FAERS Safety Report 12664652 (Version 4)
Quarter: 2018Q1

REPORT INFORMATION
  Report Type: Report from Study
  Country: CA (occurrence: CA)
  Receive Date: 20160818
  Receipt Date: 20180206
  Transmission Date: 20180508
  Serious: Yes (Death, Hospitalization)
  Sender: FDA-Public Use
  Company Number: PHHY2016CA112852

PATIENT
  Sex: Male

DRUGS (1)
  1. REVOLADE [Suspect]
     Active Substance: ELTROMBOPAG
     Indication: IMMUNE THROMBOCYTOPENIC PURPURA
     Dosage: 75 MG, UNK
     Route: 048

REACTIONS (3)
  - Malaise [Unknown]
  - Death [Fatal]
  - Cystitis [Unknown]
